FAERS Safety Report 7355426-3 (Version None)
Quarter: 2011Q1

REPORT INFORMATION
  Report Type: 
  Country: None (occurrence: None)
  Receive Date: 20110316
  Receipt Date: 20110309
  Transmission Date: 20110831
  Serious: Yes (Death, Other)
  Sender: FDA-Public Use
  Company Number: AU-ELI_LILLY_AND_COMPANY-AU201103002900

PATIENT

DRUGS (2)
  1. GEMCITABINE HYDROCHLORIDE [Suspect]
     Indication: BILIARY TRACT DISORDER
     Dosage: 10 MG/M2/MIN
     Route: 065
  2. CISPLATIN [Concomitant]
     Indication: BILIARY TRACT DISORDER
     Dosage: 20 MG/M2, OVER 1-2 HRS ON DAYS 1 AND 8 OF EACH 21-DAY CYCLE
     Route: 065

REACTIONS (2)
  - HAEMATEMESIS [None]
  - THROMBOCYTOPENIA [None]
